FAERS Safety Report 14924240 (Version 2)
Quarter: 2018Q2

REPORT INFORMATION
  Report Type: Spontaneous
  Country: GB (occurrence: GB)
  Receive Date: 20180522
  Receipt Date: 20180611
  Transmission Date: 20180711
  Serious: Yes (Other)
  Sender: FDA-Public Use
  Company Number: GB-PFIZER INC-2018204351

PATIENT
  Age: 41 Year
  Sex: Female
  Weight: 78 kg

DRUGS (6)
  1. TAPENTADOL [Concomitant]
     Active Substance: TAPENTADOL
     Dosage: 200 MG, UNK
  2. DOXYCYCLINE HYCLATE. [Suspect]
     Active Substance: DOXYCYCLINE HYCLATE
     Indication: TONSILLITIS
     Dosage: 100 MG, TWO TABLETS TO BEGIN WITH, FOLLOWED BY 1 A DAY FOR 7 DAYS
     Route: 048
     Dates: end: 20180329
  3. PARACETAMOL [Concomitant]
     Active Substance: ACETAMINOPHEN
     Dosage: 500 MG, UNK
  4. LANSOPRAZOLE. [Concomitant]
     Active Substance: LANSOPRAZOLE
     Dosage: UNK
  5. GAVISCON ADVANCE [Concomitant]
     Active Substance: POTASSIUM BICARBONATE\SODIUM ALGINATE
     Dosage: UNK
  6. TAPENTADOL [Concomitant]
     Active Substance: TAPENTADOL
     Dosage: 50 MG, UNK

REACTIONS (5)
  - Dry skin [Not Recovered/Not Resolved]
  - Vulvovaginal candidiasis [Not Recovered/Not Resolved]
  - Dry mouth [Recovering/Resolving]
  - Oral candidiasis [Not Recovered/Not Resolved]
  - Skin exfoliation [Not Recovered/Not Resolved]

NARRATIVE: CASE EVENT DATE: 20180328
